FAERS Safety Report 5449133-1 (Version None)
Quarter: 2007Q3

REPORT INFORMATION
  Report Type: 
  Country: None (occurrence: None)
  Receive Date: 20070911
  Receipt Date: 20070906
  Transmission Date: 20080115
  Serious: Yes (Other)
  Sender: FDA-Public Use
  Company Number: HQWYE019012JUL07

PATIENT
  Age: 74 Year
  Sex: Male
  Weight: 81.72 kg

DRUGS (5)
  1. ADVIL LIQUI-GELS [Suspect]
     Indication: ANALGESIA
     Dosage: 2 CAPSULES X 1
     Route: 048
     Dates: start: 20070708, end: 20070708
  2. PREDNISONE TAB [Concomitant]
     Dosage: UNKNOWN
     Route: 065
  3. TOPROL-XL [Concomitant]
     Dosage: UNKNOWN
     Route: 048
  4. PLAVIX [Concomitant]
     Dosage: UNKNOWN
     Route: 048
  5. VYTORIN [Concomitant]
     Dosage: UNKNOWN
     Route: 048

REACTIONS (2)
  - ANAPHYLACTIC SHOCK [None]
  - LOSS OF CONSCIOUSNESS [None]
